FAERS Safety Report 9840133 (Version 1)
Quarter: 2013Q4

REPORT INFORMATION
  Report Type: Spontaneous
  Country: US (occurrence: None)
  Receive Date: 20131211
  Receipt Date: 20131211
  Transmission Date: 20140711
  Serious: No
  Sender: FDA-Public Use
  Company Number: ALL1-2013-01206

PATIENT
  Age: 26 Year
  Sex: Female
  Weight: 43.5 kg

DRUGS (8)
  1. FIRAZYR [Suspect]
     Indication: ENZYME ABNORMALITY
     Dosage: 30 MG, AS REQ^D (FOR ACUTE ATTACK OF HAE), SUBCUTANEOUS
     Route: 058
  2. FLUCONAZOLE (FLUCONAZOLE) [Concomitant]
  3. LEXAPRO (ESCITALOPRAM OXALATE) [Concomitant]
  4. DEPO-PROVERA (MEDROXYPROGESTERONE ACETATE)? [Concomitant]
  5. AMBIEN (ZOLPIDEM TARTRATE) [Concomitant]
  6. MYCAMINE (MICAFUNGIN SODIUM) [Concomitant]
  7. ATIVAN (LORAZEPAM) [Concomitant]
  8. BERINERT (COMPLEMENT C1 ESTERASE INHIBITOR) [Concomitant]

REACTIONS (2)
  - Abdominal pain upper [None]
  - Injection site pain [None]
